FAERS Safety Report 22819678 (Version 3)
Quarter: 2023Q4

REPORT INFORMATION
  Report Type: Spontaneous
  Country: JP (occurrence: None)
  Receive Date: 20230814
  Receipt Date: 20231024
  Transmission Date: 20240110
  Serious: Yes (Life-Threatening, Disabling, Other)
  Sender: FDA-Public Use
  Company Number: 2023A087165

PATIENT
  Age: 80 Year
  Sex: Male
  Weight: 54 kg

DRUGS (3)
  1. ONDEXXYA [Suspect]
     Active Substance: ANDEXANET ALFA
     Indication: Mediastinal haematoma
     Dosage: 880.0MG UNKNOWN
     Route: 040
     Dates: start: 20230411, end: 20230411
  2. EDOXABAN TOSYLATE [Suspect]
     Active Substance: EDOXABAN TOSYLATE
     Indication: Atrial fibrillation
     Route: 048
     Dates: end: 20230411
  3. CANDESARTAN [Concomitant]
     Active Substance: CANDESARTAN
     Indication: Hypertension
     Route: 048
     Dates: end: 20230411

REACTIONS (5)
  - Renal infarct [Not Recovered/Not Resolved]
  - Haemothorax [Unknown]
  - Splenic infarction [Not Recovered/Not Resolved]
  - Myocardial infarction [Recovered/Resolved with Sequelae]
  - Cerebral infarction [Recovered/Resolved with Sequelae]

NARRATIVE: CASE EVENT DATE: 20230411
